FAERS Safety Report 11916475 (Version 1)
Quarter: 2016Q1

REPORT INFORMATION
  Report Type: Report from Study
  Country: FR (occurrence: FR)
  Receive Date: 20160114
  Receipt Date: 20160114
  Transmission Date: 20160526
  Serious: Yes (Hospitalization)
  Sender: FDA-Public Use
  Company Number: FR-ROCHE-1689416

PATIENT
  Age: 63 Year
  Sex: Male
  Weight: 92 kg

DRUGS (17)
  1. OXYCONTIN [Concomitant]
     Active Substance: OXYCODONE HYDROCHLORIDE
     Route: 065
     Dates: start: 20151124
  2. FOLINIC ACID [Suspect]
     Active Substance: LEUCOVORIN
     Indication: COLORECTAL CANCER METASTATIC
     Dosage: ADMINISTERED PER INVESTIGATOR DISCRETION IN ACCORDANCE WITH LOCAL STANDARDS
     Route: 065
  3. COAPROVEL [Concomitant]
     Active Substance: HYDROCHLOROTHIAZIDE\IRBESARTAN
     Route: 065
  4. ROSUVASTATINE [Concomitant]
     Active Substance: ROSUVASTATIN
  5. VEMURAFENIB [Suspect]
     Active Substance: VEMURAFENIB
     Indication: COLORECTAL CANCER METASTATIC
     Dosage: LAST DOSE OF VEMURAFINIB PRIOR TO SAE : 31/DEC/2015
     Route: 048
  6. LANTUS [Concomitant]
     Active Substance: INSULIN GLARGINE
     Dosage: 70 UNIT
     Route: 065
  7. BEVACIZUMAB [Suspect]
     Active Substance: BEVACIZUMAB
     Indication: COLORECTAL CANCER METASTATIC
     Dosage: VIA 15-30 MINUTE INTRAVENEOUS (IV) INFUSION ON DAY 1 OF EVERY 2-WEEK CYCLE PER LOCAL PRESCRIBING INF
     Route: 042
  8. CETUXIMAB [Suspect]
     Active Substance: CETUXIMAB
     Indication: COLORECTAL CANCER METASTATIC
     Dosage: LAST DOSE OF CETUXIMAB (680 MG) PRIOR TO SAE: 18/DEC/2015
     Route: 042
  9. 5-FLUOROURACIL [Suspect]
     Active Substance: FLUOROURACIL
     Indication: COLORECTAL CANCER METASTATIC
     Dosage: LAST DOSE PRIOR TO SAE: 18/DEC/2015
     Route: 042
  10. CEFIXIME. [Concomitant]
     Active Substance: CEFIXIME
     Route: 065
     Dates: start: 20151204
  11. NEORECORMON [Concomitant]
     Active Substance: ERYTHROPOIETIN
     Route: 065
     Dates: start: 20151013
  12. NOVORAPID [Concomitant]
     Active Substance: INSULIN ASPART
     Dosage: 26 UNIT
     Route: 065
  13. OXALIPLATIN. [Suspect]
     Active Substance: OXALIPLATIN
     Indication: COLORECTAL CANCER METASTATIC
     Dosage: ADMINISTERED PER INVESTIGATOR DISCRETION IN ACCORDANCE WITH LOCAL STANDARDS
     Route: 065
  14. OMEPRAZOL [Concomitant]
     Active Substance: OMEPRAZOLE
     Route: 065
  15. LANSOYL [Concomitant]
     Active Substance: MINERAL OIL
     Dosage: 1 TBSP
     Route: 065
     Dates: start: 20151013
  16. PARACETAMOL [Concomitant]
     Active Substance: ACETAMINOPHEN
     Route: 065
     Dates: start: 20151013
  17. OXYNORM [Concomitant]
     Active Substance: OXYCODONE HYDROCHLORIDE
     Route: 065
     Dates: start: 20151124

REACTIONS (1)
  - Acute kidney injury [Not Recovered/Not Resolved]

NARRATIVE: CASE EVENT DATE: 20151231
